FAERS Safety Report 7865502-4 (Version None)
Quarter: 2011Q4

REPORT INFORMATION
  Report Type: 
  Country: None (occurrence: None)
  Receive Date: 20111028
  Receipt Date: 20110106
  Transmission Date: 20120403
  Serious: No
  Sender: FDA-Public Use
  Company Number: US-GLAXOSMITHKLINE-A0904111A

PATIENT
  Age: 67 Year
  Sex: Female

DRUGS (8)
  1. SPIRIVA [Concomitant]
  2. XANAX [Concomitant]
  3. ADVAIR DISKUS 100/50 [Suspect]
     Indication: CHRONIC OBSTRUCTIVE PULMONARY DISEASE
     Dosage: 1PUFF PER DAY
     Route: 055
  4. ATIVAN [Concomitant]
  5. ACTONEL [Concomitant]
  6. PREDNISONE [Concomitant]
  7. ALBUTEROL NEBULIZED [Concomitant]
  8. OXYGEN [Concomitant]

REACTIONS (1)
  - TREMOR [None]
